FAERS Safety Report 15302653 (Version 1)
Quarter: 2018Q3

REPORT INFORMATION
  Report Type: Report from Study
  Country: JP (occurrence: JP)
  Receive Date: 20180821
  Receipt Date: 20180821
  Transmission Date: 20181010
  Serious: Yes (Hospitalization)
  Sender: FDA-Public Use
  Company Number: JP-MITSUBISHI TANABE PHARMA CORPORATION-MTPC2018-0019242

PATIENT
  Age: 70 Year
  Sex: Male
  Weight: 53 kg

DRUGS (5)
  1. STICKZENOL [Concomitant]
     Indication: AMYOTROPHIC LATERAL SCLEROSIS
     Dosage: APPROPRIATE DOSE/DAY
     Route: 051
  2. ATARAX?P [Concomitant]
     Active Substance: HYDROXYZINE HYDROCHLORIDE
     Dosage: 25 MG/DAY PRN
     Route: 048
  3. RADICUT [Suspect]
     Active Substance: EDARAVONE
     Indication: AMYOTROPHIC LATERAL SCLEROSIS
     Route: 041
     Dates: start: 20170925, end: 20171008
  4. SENNOSIDE [Concomitant]
     Active Substance: SENNOSIDES
     Dosage: 12 MG/DAY PRN
     Route: 048
  5. RILUZOLE. [Suspect]
     Active Substance: RILUZOLE
     Indication: AMYOTROPHIC LATERAL SCLEROSIS
     Route: 048
     Dates: start: 20170915

REACTIONS (1)
  - Hepatic function abnormal [Recovered/Resolved]

NARRATIVE: CASE EVENT DATE: 20170927
